FAERS Safety Report 6029837-2 (Version None)
Quarter: 2009Q1

REPORT INFORMATION
  Report Type: 
  Country: None (occurrence: None)
  Receive Date: 20090106
  Receipt Date: 20090106
  Transmission Date: 20090719
  Serious: Yes (Hospitalization)
  Sender: FDA-Public Use
  Company Number: None

PATIENT
  Age: 59 Year
  Sex: Male
  Weight: 102.0593 kg

DRUGS (1)
  1. MELOXICAM [Suspect]
     Indication: ARTHRITIS
     Dosage: 1 PILL 1 ADAY MOUTH
     Route: 048
     Dates: start: 20081211, end: 20081218

REACTIONS (5)
  - BLOOD PRESSURE INCREASED [None]
  - DIARRHOEA [None]
  - GASTRIC DISORDER [None]
  - PRODUCT QUALITY ISSUE [None]
  - SWELLING FACE [None]
